FAERS Safety Report 24557251 (Version 1)
Quarter: 2024Q4

REPORT INFORMATION
  Report Type: Report from Study
  Country: UA (occurrence: UA)
  Receive Date: 20241028
  Receipt Date: 20241028
  Transmission Date: 20250114
  Serious: Yes (Other)
  Sender: PFIZER
  Company Number: UA-TAKEDA-2024TUS066821

PATIENT
  Age: 40 Year
  Sex: Female

DRUGS (2)
  1. ADCETRIS [Suspect]
     Active Substance: BRENTUXIMAB VEDOTIN
     Indication: Hodgkin^s disease refractory
     Dosage: FOUR VIALS Q3WEEKS
     Route: 042
     Dates: start: 20240409
  2. ADCETRIS [Suspect]
     Active Substance: BRENTUXIMAB VEDOTIN
     Dosage: TWO VIALS Q3WEEKS
     Route: 042

REACTIONS (4)
  - Polyneuropathy [Unknown]
  - Sepsis [Unknown]
  - Bacteriuria [Unknown]
  - Hyperthermia [Unknown]

NARRATIVE: CASE EVENT DATE: 20240101
